FAERS Safety Report 9558345 (Version 1)
Quarter: 2013Q3

REPORT INFORMATION
  Report Type: Spontaneous
  Country: JP (occurrence: JP)
  Receive Date: 20130926
  Receipt Date: 20130926
  Transmission Date: 20140515
  Serious: Yes (Disabling, Other)
  Sender: FDA-Public Use
  Company Number: JP-TAKEDA-2013TUS000908

PATIENT
  Age: 62 Year
  Sex: Male

DRUGS (12)
  1. FEBURIC [Suspect]
     Indication: HYPERURICAEMIA
     Dosage: 10 MG, QD
     Route: 048
     Dates: start: 20130802, end: 20130905
  2. APRONAL [Suspect]
     Indication: TOOTHACHE
     Dosage: 2 DF, QD
     Route: 048
     Dates: start: 20130801, end: 201308
  3. CALBLOCK [Concomitant]
     Indication: HYPERTENSION
     Dosage: 16 MG, QD
     Route: 048
  4. OLMETEC [Concomitant]
     Indication: HYPERTENSION
     Dosage: 20 MG, QD
     Route: 048
  5. PLETAAL OD [Concomitant]
     Indication: CEREBRAL INFARCTION
     Dosage: Q200 MG, QD
     Route: 048
  6. METHYCOBAL [Concomitant]
     Indication: DIABETIC NEUROPATHY
     Dosage: 1500 MG, QD
     Route: 048
  7. LASIX                              /00032601/ [Concomitant]
     Indication: DIABETIC NEPHROPATHY
     Dosage: 20 MG, QD
     Route: 048
  8. ALLELOCK OD [Concomitant]
     Indication: ECZEMA
     Dosage: 5 MG, QD
     Route: 048
  9. BENZALIN [Concomitant]
     Indication: INSOMNIA
     Dosage: 10 MG, QD
     Route: 048
  10. MAGMITT [Concomitant]
     Indication: CONSTIPATION
     Dosage: 1320 MG, QD
     Route: 048
  11. NOVORAPID [Concomitant]
     Indication: TYPE 1 DIABETES MELLITUS
     Dosage: 30 IU, QD
     Route: 058
  12. LANTUS [Concomitant]
     Indication: TYPE 1 DIABETES MELLITUS
     Dosage: 10 IU, QD
     Route: 058

REACTIONS (1)
  - Renal failure [Not Recovered/Not Resolved]
